FAERS Safety Report 8243944-5 (Version None)
Quarter: 2012Q1

REPORT INFORMATION
  Report Type: 
  Country: None (occurrence: None)
  Receive Date: 20120329
  Receipt Date: 20110829
  Transmission Date: 20120608
  Serious: No
  Sender: FDA-Public Use
  Company Number: US-MYLANLABS-2011S1018188

PATIENT
  Age: 43 Year
  Sex: Female
  Weight: 52.62 kg

DRUGS (1)
  1. ESTRADIOL [Suspect]
     Indication: HORMONE REPLACEMENT THERAPY
     Dosage: CHANGED QW
     Route: 062
     Dates: start: 20110411

REACTIONS (2)
  - APPLICATION SITE VESICLES [None]
  - APPLICATION SITE IRRITATION [None]
